FAERS Safety Report 7943696-X (Version None)
Quarter: 2011Q4

REPORT INFORMATION
  Report Type: 
  Country: None (occurrence: None)
  Receive Date: 20111128
  Receipt Date: 20111118
  Transmission Date: 20120403
  Serious: Yes (Hospitalization)
  Sender: FDA-Public Use
  Company Number: HU-ABBOTT-11P-076-0836217-00

PATIENT
  Sex: Female
  Weight: 43 kg

DRUGS (6)
  1. METHYLPREDNISOLONE [Concomitant]
     Indication: IMMUNOSUPPRESSION
     Dates: start: 20070207
  2. AZATHIOPRINE [Concomitant]
     Indication: IMMUNOSUPPRESSION
     Dates: start: 20070214
  3. HUMIRA [Suspect]
     Indication: CROHN'S DISEASE
     Route: 058
     Dates: start: 20080715, end: 20080715
  4. HUMIRA [Suspect]
     Route: 058
     Dates: start: 20080701, end: 20080701
  5. HUMIRA [Suspect]
     Route: 058
     Dates: start: 20080801, end: 20110311
  6. BUDESONIDE [Concomitant]
     Indication: IMMUNOSUPPRESSION
     Route: 055

REACTIONS (1)
  - CROHN'S DISEASE [None]
